FAERS Safety Report 17996047 (Version 2)
Quarter: 2020Q3

REPORT INFORMATION
  Report Type: Spontaneous
  Country: US (occurrence: US)
  Receive Date: 20200708
  Receipt Date: 20200814
  Transmission Date: 20201103
  Serious: No
  Sender: FDA-Public Use
  Company Number: US-PFIZER INC-2019506344

PATIENT
  Age: 14 Year
  Sex: Male
  Weight: 42.18 kg

DRUGS (3)
  1. GENOTROPIN [Suspect]
     Active Substance: SOMATROPIN
     Dosage: 1.4 MG, DAILY
     Dates: start: 201912
  2. GENOTROPIN [Suspect]
     Active Substance: SOMATROPIN
     Indication: NOONAN SYNDROME
     Dosage: 1.6 MG, DAILY
     Dates: start: 20191219
  3. GENOTROPIN [Suspect]
     Active Substance: SOMATROPIN
     Dosage: 1.6 MG, DAILY
     Dates: start: 20200628

REACTIONS (7)
  - Injection site discomfort [Unknown]
  - Device issue [Unknown]
  - Poor quality device used [Unknown]
  - Off label use [Unknown]
  - Wrong technique in device usage process [Unknown]
  - Product use in unapproved indication [Unknown]
  - Device breakage [Unknown]

NARRATIVE: CASE EVENT DATE: 20191219
